FAERS Safety Report 9202093 (Version 4)
Quarter: 2015Q1

REPORT INFORMATION
  Report Type: Spontaneous
  Country: US (occurrence: US)
  Receive Date: 20130401
  Receipt Date: 20150123
  Transmission Date: 20150721
  Serious: Yes (Hospitalization, Other)
  Sender: FDA-Public Use
  Company Number: US-GLAXOSMITHKLINE-A0770008A

PATIENT
  Age: 60 Year
  Sex: Female

DRUGS (3)
  1. LAMOTRIGINE. [Suspect]
     Active Substance: LAMOTRIGINE
     Indication: BIPOLAR DISORDER
     Dosage: UNK, U
     Route: 048
     Dates: start: 20051219
  2. ADDERALL [Suspect]
     Active Substance: AMPHETAMINE ASPARTATE\AMPHETAMINE SULFATE\DEXTROAMPHETAMINE SACCHARATE\DEXTROAMPHETAMINE SULFATE
     Indication: ATTENTION DEFICIT/HYPERACTIVITY DISORDER
  3. LAMICTAL [Suspect]
     Active Substance: LAMOTRIGINE
     Indication: BIPOLAR DISORDER
     Dosage: 25 MG TABLET
     Dates: start: 20051212

REACTIONS (10)
  - Abasia [Unknown]
  - Tremor [Unknown]
  - Femur fracture [Unknown]
  - Pneumonia [Unknown]
  - Decreased appetite [Unknown]
  - Nervousness [Unknown]
  - Disturbance in attention [Unknown]
  - Overdose [Unknown]
  - Drug ineffective [Unknown]
  - Vomiting [Unknown]

NARRATIVE: CASE EVENT DATE: 200902
